FAERS Safety Report 13081636 (Version 1)
Quarter: 2017Q1

REPORT INFORMATION
  Report Type: Spontaneous
  Country: CA (occurrence: CA)
  Receive Date: 20170103
  Receipt Date: 20170103
  Transmission Date: 20170428
  Serious: Yes (Other)
  Sender: FDA-Public Use
  Company Number: CA-REGENERON PHARMACEUTICALS, INC.-2016-25714

PATIENT

DRUGS (3)
  1. EYLEA [Suspect]
     Active Substance: AFLIBERCEPT
     Dosage: UNK
     Route: 031
  2. EYLEA [Suspect]
     Active Substance: AFLIBERCEPT
     Dosage: SECOND INJECTION
     Route: 031
     Dates: start: 20161207, end: 20161207
  3. EYLEA [Suspect]
     Active Substance: AFLIBERCEPT
     Indication: PRODUCT USED FOR UNKNOWN INDICATION
     Dosage: FIRST INJECTION
     Route: 031
     Dates: start: 20161121, end: 20161121

REACTIONS (2)
  - Eye pain [Unknown]
  - Blindness [Unknown]
